FAERS Safety Report 20538098 (Version 1)
Quarter: 2022Q1

REPORT INFORMATION
  Report Type: Spontaneous
  Country: US (occurrence: None)
  Receive Date: 20220302
  Receipt Date: 20220302
  Transmission Date: 20220423
  Serious: Yes (Hospitalization)
  Sender: FDA-Public Use
  Company Number: None

PATIENT
  Age: 64 Year
  Sex: Male

DRUGS (2)
  1. PIPERACILLIN SODIUM\TAZOBACTAM SODIUM [Suspect]
     Active Substance: PIPERACILLIN SODIUM\TAZOBACTAM SODIUM
     Indication: Pneumonia
     Dosage: FREQUENCY : ONCE;?
     Route: 042
     Dates: start: 20220116
  2. VANCOMYCIN [Suspect]
     Active Substance: VANCOMYCIN
     Dosage: FREQUENCY : ONCE;?
     Dates: start: 20220116, end: 20220116

REACTIONS (6)
  - Abnormal behaviour [None]
  - Periorbital oedema [None]
  - Skin discolouration [None]
  - Erythema [None]
  - Lip oedema [None]
  - Anaphylactic reaction [None]

NARRATIVE: CASE EVENT DATE: 20220116
